FAERS Safety Report 7862203-3 (Version None)
Quarter: 2011Q4

REPORT INFORMATION
  Report Type: 
  Country: None (occurrence: None)
  Receive Date: 20111027
  Receipt Date: 20101105
  Transmission Date: 20120403
  Serious: No
  Sender: FDA-Public Use
  Company Number: US-AMGEN-USASP2010001329

PATIENT
  Age: 36 Year
  Sex: Female
  Weight: 53.061 kg

DRUGS (8)
  1. MULTIVITAMIN [Concomitant]
     Dosage: UNK
  2. CONTRACEPTIVES NOS [Concomitant]
     Dosage: UNK
  3. METHOTREXATE [Concomitant]
     Dosage: 20 MG, QWK
     Dates: start: 20091001
  4. FOLIC ACID [Concomitant]
     Dosage: 1 MG, QD
     Route: 048
  5. ENBREL [Suspect]
     Indication: PSORIATIC ARTHROPATHY
  6. ALBUTEROL [Concomitant]
  7. ENBREL [Suspect]
     Indication: PSORIASIS
     Dosage: 50 MG, QWK
     Route: 058
     Dates: start: 20100209
  8. PULMICORT [Concomitant]
     Dosage: UNK

REACTIONS (1)
  - DYSGEUSIA [None]
